FAERS Safety Report 8373364-4 (Version None)
Quarter: 2012Q2

REPORT INFORMATION
  Report Type: 
  Country: None (occurrence: None)
  Receive Date: 20120521
  Receipt Date: 20120509
  Transmission Date: 20120825
  Serious: Yes (Other)
  Sender: FDA-Public Use
  Company Number: US-ELI_LILLY_AND_COMPANY-US201101002495

PATIENT
  Sex: Female

DRUGS (15)
  1. FORTEO [Suspect]
     Dosage: 20 UG, QD
     Route: 065
  2. CALCIUM CARBONATE [Concomitant]
  3. OMEPRAZOLE [Concomitant]
  4. GABAPENTIN [Concomitant]
     Dosage: UNK, TID
  5. VITAMIN D [Concomitant]
  6. FORTEO [Suspect]
     Dosage: 20 UG, QD
     Route: 065
  7. PLAVIX [Concomitant]
     Dosage: UNK, QD
  8. GLIPIZIDE [Concomitant]
  9. SUCRALFATE [Concomitant]
  10. FORTEO [Suspect]
     Indication: OSTEOPOROSIS
     Dosage: 20 UG, QD
     Route: 065
  11. FORTEO [Suspect]
     Dosage: 20 UG, QD
     Route: 065
  12. LISINOPRIL [Concomitant]
     Dosage: UNK, QD
  13. ASPIRIN [Concomitant]
     Dosage: 81 MG, QD
  14. JANUMET [Concomitant]
     Dosage: UNK, BID
  15. CRESTOR [Concomitant]
     Dosage: UNK, QD

REACTIONS (9)
  - CHOLECYSTECTOMY [None]
  - DYSPNOEA [None]
  - ABDOMINAL DISTENSION [None]
  - MUSCULOSKELETAL PAIN [None]
  - HEPATIC CIRRHOSIS [None]
  - BONE DENSITY DECREASED [None]
  - NASOPHARYNGITIS [None]
  - ABDOMINAL PAIN UPPER [None]
  - FALL [None]
